FAERS Safety Report 12121155 (Version 1)
Quarter: 2016Q1

REPORT INFORMATION
  Report Type: Spontaneous
  Country: US (occurrence: US)
  Receive Date: 20160226
  Receipt Date: 20160226
  Transmission Date: 20160526
  Serious: No
  Sender: FDA-Public Use
  Company Number: US-ALLERGAN-1105783US

PATIENT
  Age: 74 Year
  Sex: Female

DRUGS (4)
  1. NEVANAC [Concomitant]
     Active Substance: NEPAFENAC
  2. ZYMAXID [Concomitant]
     Active Substance: GATIFLOXACIN
  3. REFRESH OPTIVE [Suspect]
     Active Substance: CARBOXYMETHYLCELLULOSE SODIUM\GLYCERIN
     Indication: POSTOPERATIVE CARE
     Dosage: 1 GTT, QID
     Route: 047
     Dates: start: 20110222, end: 20110425
  4. GENTEAL                            /00445101/ [Concomitant]

REACTIONS (1)
  - Eye irritation [Unknown]
